FAERS Safety Report 8958105 (Version 2)
Quarter: 2013Q1

REPORT INFORMATION
  Report Type: Spontaneous
  Country: US (occurrence: US)
  Receive Date: 20121211
  Receipt Date: 20130225
  Transmission Date: 20140127
  Serious: Yes (Other)
  Sender: FDA-Public Use
  Company Number: PHHY2012US113852

PATIENT
  Sex: Female
  Weight: 155 kg

DRUGS (12)
  1. METOPROLOL [Suspect]
     Indication: BLOOD PRESSURE ABNORMAL
     Dosage: 0.5 DF, DAILY (IN THE THE PM)
     Route: 048
  2. OMEPRAZOLE [Interacting]
     Dosage: 2 DF, BID (ONCE IN THE AM AND ONCE IN THE PM)
  3. BIOTIN [Interacting]
     Dosage: 1 DF, IN THE AM
  4. PRAVASTATIN SODIUM [Interacting]
     Indication: BLOOD CHOLESTEROL ABNORMAL
     Dosage: 1 DF, IN THE PM
  5. ALDACTAZIDE A [Interacting]
     Indication: JOINT SWELLING
     Dosage: 1 DF, PRN (IN THE AM) (25 MG HCT AND 25 MG SPIRO)
  6. COLACE [Interacting]
     Dosage: 1 DF, UNK
  7. CENTRUM SILVER [Interacting]
     Dosage: 1 DF, IN THE AM
  8. SUPER B COMPLEX /01995301/ [Interacting]
     Dosage: 1 DF, IN THE AM
  9. OMEGA 3 /06852001/ [Interacting]
     Dosage: 1 DF, IN THE AM
  10. CALTRATE + D /00944201/ [Interacting]
     Dosage: 1 DF, IN THE AM
  11. COLON HEALTH PROBIOTICS [Interacting]
     Dosage: 1 DF, UNK
  12. MIRALAX [Concomitant]
     Dosage: IN THE PM

REACTIONS (2)
  - Blindness [Unknown]
  - Drug interaction [Unknown]
